FAERS Safety Report 8328090-4 (Version None)
Quarter: 2012Q2

REPORT INFORMATION
  Report Type: 
  Country: None (occurrence: None)
  Receive Date: 20120502
  Receipt Date: 20120424
  Transmission Date: 20120825
  Serious: Yes (Other)
  Sender: FDA-Public Use
  Company Number: PHHY2012MX036563

PATIENT
  Sex: Male

DRUGS (4)
  1. FUROSEMIDE [Concomitant]
     Indication: FLUID RETENTION
     Dosage: 1 DF, DAILY
  2. DIOVAN [Suspect]
     Indication: HYPERTENSION
     Dosage: 1 DF, DAILY (320 MG)
     Dates: start: 20120327
  3. LOSARTAN POTASSIUM AND HYDROCHLOROTHIAZIDE [Concomitant]
     Indication: HYPERTENSION
     Dosage: 1 DF, DAILY
  4. PRAVASTATIN [Concomitant]
     Indication: BLOOD CHOLESTEROL
     Dosage: 1 DF, DAILY

REACTIONS (2)
  - RESPIRATORY TRACT CONGESTION [None]
  - BLOOD PRESSURE INCREASED [None]
